FAERS Safety Report 6248607-3 (Version None)
Quarter: 2009Q2

REPORT INFORMATION
  Report Type: 
  Country: None (occurrence: None)
  Receive Date: 20090624
  Receipt Date: 20090610
  Transmission Date: 20091009
  Serious: Yes (Other)
  Sender: FDA-Public Use
  Company Number: 2009S1004759

PATIENT
  Age: 77 Year
  Sex: Female

DRUGS (1)
  1. PHOSPHOSODA          FLAVOR NOT SPECIFIED [Suspect]
     Indication: COLONOSCOPY
     Dosage: 90 ML;TOTAL;PO
     Route: 048
     Dates: start: 20080727, end: 20080728

REACTIONS (2)
  - BLOOD CREATININE INCREASED [None]
  - CONFUSIONAL STATE [None]
